FAERS Safety Report 15965229 (Version 10)
Quarter: 2021Q4

REPORT INFORMATION
  Report Type: Spontaneous
  Country: DE (occurrence: DE)
  Receive Date: 20190215
  Receipt Date: 20211027
  Transmission Date: 20220304
  Serious: Yes (Hospitalization, Other)
  Sender: FDA-Public Use
  Company Number: DE-002147023-PHHY2019DE019178

PATIENT
  Age: 70 Year
  Sex: Male
  Weight: 95 kg

DRUGS (49)
  1. VALSARTAN [Suspect]
     Active Substance: VALSARTAN
     Indication: Hypertension
     Dosage: 160 MILLIGRAM, ONCE A DAY
     Route: 065
     Dates: start: 201402, end: 201506
  2. VALSARTAN [Suspect]
     Active Substance: VALSARTAN
     Dosage: 320 MILLIGRAM, ONCE A DAY
     Route: 065
     Dates: start: 201506
  3. AMLODIPINE [Suspect]
     Active Substance: AMLODIPINE BESYLATE
     Indication: Hypertension
     Dosage: UNK
     Route: 065
  4. ASPIRIN [Suspect]
     Active Substance: ASPIRIN
     Indication: Arteriosclerosis coronary artery
     Dosage: 100 DF, QOD (EVERY SECOND DAY)
     Route: 065
  5. ASPIRIN [Suspect]
     Active Substance: ASPIRIN
     Dosage: 100 DOSAGE FORM, ONCE A DAY
     Route: 048
     Dates: start: 201808
  6. HYDROCHLOROTHIAZIDE\VALSARTAN [Suspect]
     Active Substance: HYDROCHLOROTHIAZIDE\VALSARTAN
     Indication: Hypertension
     Dosage: 1 DOSAGE FORM, ONCE A DAY, 1 DF, QD (320/25)
     Route: 048
  7. HYDROCHLOROTHIAZIDE\VALSARTAN [Suspect]
     Active Substance: HYDROCHLOROTHIAZIDE\VALSARTAN
     Dosage: 1 DOSAGE FORM, ONCE A DAY, 1 DF, QD (160/25
     Route: 048
     Dates: start: 201512
  8. HYDROCHLOROTHIAZIDE\VALSARTAN [Suspect]
     Active Substance: HYDROCHLOROTHIAZIDE\VALSARTAN
     Dosage: UNKUNK (160 MG /25 MG)
     Route: 065
  9. VALSARTAN [Suspect]
     Active Substance: VALSARTAN
     Indication: Hypertension
     Dosage: 320 MILLIGRAM, ONCE A DAY
     Route: 065
     Dates: start: 2015, end: 201807
  10. VALSARTAN [Suspect]
     Active Substance: VALSARTAN
     Dosage: 1 DOSAGE FORM, ONCE A DAY
     Route: 048
     Dates: start: 201505, end: 201808
  11. HYDROCHLOROTHIAZIDE\VALSARTAN [Suspect]
     Active Substance: HYDROCHLOROTHIAZIDE\VALSARTAN
     Indication: Hypertension
     Dosage: 1 DOSAGE FORM, ONCE A DAY, 1 DF, QD (PER DAY, IN THE MORNINGS)
     Route: 048
     Dates: start: 201505, end: 201808
  12. METOPROLOL SUCCINATE [Concomitant]
     Active Substance: METOPROLOL SUCCINATE
     Indication: Product used for unknown indication
     Dosage: 1 DOSAGE FORM, ONCE A DAY
     Route: 065
  13. CANDESARTAN [Concomitant]
     Active Substance: CANDESARTAN
     Indication: Product used for unknown indication
     Dosage: 1 DOSAGE FORM, ONCE A DAY
     Route: 065
  14. TETANUS AND DIPHTHERIA TOXOIDS ADSORBED (VACCINE) [Concomitant]
     Active Substance: CLOSTRIDIUM TETANI\CLOSTRIDIUM TETANI TOXOID ANTIGEN (FORMALDEHYDE INACTIVATED)\CORYNEBACTERIUM DIPH
     Indication: Product used for unknown indication
     Dosage: UNK
     Route: 065
     Dates: start: 20190912
  15. HAVRIX [Concomitant]
     Active Substance: HEPATITIS A VIRUS STRAIN HM175 ANTIGEN (FORMALDEHYDE INACTIVATED)
     Indication: Product used for unknown indication
     Dosage: UNK
     Route: 065
     Dates: start: 20190916
  16. Herzass [Concomitant]
     Indication: Product used for unknown indication
     Dosage: 100 MILLIGRAM
     Route: 065
  17. HYDROCHLOROTHIAZIDE\VALSARTAN [Concomitant]
     Active Substance: HYDROCHLOROTHIAZIDE\VALSARTAN
     Indication: Product used for unknown indication
     Dosage: 1 DOSAGE FORM, ONCE A DAY, 1 DF, QD (1-0-0)
     Route: 065
     Dates: start: 20171018, end: 20171018
  18. HYDROCHLOROTHIAZIDE\VALSARTAN [Concomitant]
     Active Substance: HYDROCHLOROTHIAZIDE\VALSARTAN
     Dosage: 1 DOSAGE FORM, ONCE A DAY, 1 DF, QD (1-0-0)
     Route: 065
     Dates: start: 20171020, end: 20171024
  19. METOPROLOL SUCCINATE [Concomitant]
     Active Substance: METOPROLOL SUCCINATE
     Indication: Product used for unknown indication
     Dosage: 95 MILLIGRAM, ONCE A DAY
     Route: 065
     Dates: start: 2014
  20. METOPROLOL SUCCINATE [Concomitant]
     Active Substance: METOPROLOL SUCCINATE
     Dosage: UNK
     Route: 065
  21. METOPROLOL [Concomitant]
     Active Substance: METOPROLOL
     Indication: Hypertension
     Dosage: 95 MILLIGRAM, ONCE A DAY
     Route: 048
  22. METOPROLOL SUCCINATE [Concomitant]
     Active Substance: METOPROLOL SUCCINATE
     Indication: Product used for unknown indication
     Dosage: 1 DOSAGE FORM, ONCE A DAY
     Route: 065
     Dates: start: 20171018, end: 20171024
  23. METOPROLOL SUCCINATE [Concomitant]
     Active Substance: METOPROLOL SUCCINATE
     Dosage: 95 MILLIGRAM, ONCE A DAY
     Route: 048
  24. CALCIUM CHLORIDE\MAGNESIUM CHLORIDE\POTASSIUM CHLORIDE\SODIUM ACETATE\ [Concomitant]
     Active Substance: CALCIUM CHLORIDE\MAGNESIUM CHLORIDE\POTASSIUM CHLORIDE\SODIUM ACETATE\SODIUM CHLORIDE
     Indication: Product used for unknown indication
     Dosage: 100 MILLILITER
     Route: 065
     Dates: start: 20171020, end: 20171020
  25. CLARITHROMYCIN [Concomitant]
     Active Substance: CLARITHROMYCIN
     Indication: Product used for unknown indication
     Dosage: 1000 MILLIGRAM, ONCE A DAY
     Route: 065
  26. TORSEMIDE [Concomitant]
     Active Substance: TORSEMIDE
     Indication: Product used for unknown indication
     Dosage: 10 MILLIGRAM
     Route: 065
  27. PANTOPRAZOLE SODIUM [Concomitant]
     Active Substance: PANTOPRAZOLE SODIUM
     Indication: Product used for unknown indication
     Dosage: 40 MILLIGRAM, ONCE A DAY
     Route: 065
  28. Myopridin [Concomitant]
     Indication: Product used for unknown indication
     Dosage: 30 MILLIGRAM
     Route: 065
  29. FLUPREDNIDENE ACETATE\MICONAZOLE NITRATE [Concomitant]
     Active Substance: FLUPREDNIDENE ACETATE\MICONAZOLE NITRATE
     Indication: Product used for unknown indication
     Dosage: UNK, ONCE A DAY
     Route: 065
  30. AZELASTINE HYDROCHLORIDE [Concomitant]
     Active Substance: AZELASTINE HYDROCHLORIDE
     Indication: Product used for unknown indication
     Dosage: UNK
     Route: 065
  31. DICLOFENAC SODIUM [Concomitant]
     Active Substance: DICLOFENAC SODIUM
     Indication: Product used for unknown indication
     Dosage: UNK
     Route: 065
  32. METAMIZOLE SODIUM [Concomitant]
     Active Substance: METAMIZOLE SODIUM
     Indication: Product used for unknown indication
     Route: 065
  33. SOLARAZE [Suspect]
     Active Substance: DICLOFENAC SODIUM
     Indication: Actinic keratosis
     Route: 065
  34. Postericort [Concomitant]
     Indication: Product used for unknown indication
     Route: 065
  35. Simvastatine A [Concomitant]
     Indication: Product used for unknown indication
     Dosage: 20 MILLIGRAM
     Route: 065
  36. SIMVASTATIN [Concomitant]
     Active Substance: SIMVASTATIN
     Indication: Product used for unknown indication
     Route: 005
  37. CANDESARTAN CILEXETIL\HYDROCHLOROTHIAZIDE [Concomitant]
     Active Substance: CANDESARTAN CILEXETIL\HYDROCHLOROTHIAZIDE
     Indication: Product used for unknown indication
     Dosage: UNK UNK, ONCE A DAY
     Route: 065
  38. KETOTIFEN [Concomitant]
     Active Substance: KETOTIFEN
     Indication: Product used for unknown indication
     Route: 065
  39. AMINOPHYLLINE\QUININE SULFATE [Concomitant]
     Active Substance: AMINOPHYLLINE\QUININE SULFATE
     Indication: Muscle spasms
     Route: 065
  40. ARCOXIA [Concomitant]
     Active Substance: ETORICOXIB
     Indication: Product used for unknown indication
     Dosage: 90 MILLIGRAM
     Route: 065
  41. SODIUM PICOSULFATE [Concomitant]
     Active Substance: SODIUM PICOSULFATE
     Indication: Product used for unknown indication
     Dosage: UNK
     Route: 065
     Dates: start: 20200916, end: 20200916
  42. Kalinor [Concomitant]
     Indication: Product used for unknown indication
     Route: 065
  43. PANTOPRAZOLE SODIUM [Concomitant]
     Active Substance: PANTOPRAZOLE SODIUM
     Indication: Product used for unknown indication
     Dosage: UNK
     Route: 065
  44. EXFORGE HCT [Concomitant]
     Active Substance: AMLODIPINE BESYLATE\HYDROCHLOROTHIAZIDE\VALSARTAN
     Indication: Hypertension
     Dosage: UNK, ONCE A DAY
     Route: 065
  45. RASILEZ [Concomitant]
     Active Substance: ALISKIREN
     Indication: Hypertension
     Dosage: 300 MILLIGRAM, ONCE A DAY
     Route: 065
  46. METOPROLOL [Concomitant]
     Active Substance: METOPROLOL
     Indication: Product used for unknown indication
     Dosage: UNK, ONCE A DAY
     Route: 065
  47. CROMOLYN SODIUM [Concomitant]
     Active Substance: CROMOLYN SODIUM
     Indication: Product used for unknown indication
     Route: 065
  48. PERENTEROL [Concomitant]
     Active Substance: SACCHAROMYCES CEREVISIAE
     Indication: Product used for unknown indication
     Dosage: UNK
     Route: 065
  49. Epi pevaryl [Concomitant]
     Indication: Product used for unknown indication
     Dosage: UNK
     Route: 065

REACTIONS (75)
  - Arteriosclerosis coronary artery [Unknown]
  - Duodenitis [Unknown]
  - Cholelithiasis [Recovering/Resolving]
  - Helicobacter gastritis [Unknown]
  - Gastrointestinal submucosal tumour [Recovered/Resolved]
  - Pain [Unknown]
  - Haematocrit decreased [Unknown]
  - Cholangitis [Unknown]
  - Blood creatine phosphokinase increased [Unknown]
  - Fear [Unknown]
  - Productive cough [Unknown]
  - Back pain [Unknown]
  - PCO2 decreased [Unknown]
  - Hypoaesthesia [Unknown]
  - White blood cell count increased [Unknown]
  - Cholecystitis [Recovered/Resolved]
  - Blood potassium decreased [Unknown]
  - Oxygen saturation increased [Unknown]
  - Chills [Recovering/Resolving]
  - Platelet count increased [Unknown]
  - Haemoglobin decreased [Unknown]
  - Chest pain [Recovering/Resolving]
  - Chromaturia [Recovering/Resolving]
  - Blood sodium decreased [Unknown]
  - Pyrexia [Recovering/Resolving]
  - PO2 increased [Unknown]
  - pH body fluid increased [Unknown]
  - Night sweats [Unknown]
  - Cholestasis [Recovering/Resolving]
  - Inflammation [Recovering/Resolving]
  - Jaundice [Recovering/Resolving]
  - Abdominal pain upper [Recovering/Resolving]
  - Peritoneal adhesions [Unknown]
  - Bladder hypertrophy [Recovering/Resolving]
  - Hydrocholecystis [Recovering/Resolving]
  - Adhesion [Recovering/Resolving]
  - Hypothyroidism [Unknown]
  - Spinal cord disorder [Unknown]
  - Cardiac valve sclerosis [Unknown]
  - Erectile dysfunction [Unknown]
  - Diastolic dysfunction [Unknown]
  - Hypokalaemia [Unknown]
  - Hepatic cirrhosis [Unknown]
  - Blood pressure increased [Recovered/Resolved]
  - Infusion site thrombosis [Unknown]
  - Polyneuropathy [Unknown]
  - Blood thyroid stimulating hormone increased [Unknown]
  - Gastritis erosive [Unknown]
  - Aortic valve incompetence [Unknown]
  - Hepatic steatosis [Unknown]
  - Obesity [Unknown]
  - Costovertebral angle tenderness [Unknown]
  - Oedema [Unknown]
  - Arteriosclerosis [Unknown]
  - pH body fluid increased [Unknown]
  - Hypercholesterolaemia [Unknown]
  - Epistaxis [Unknown]
  - Cerebral arteriosclerosis [Unknown]
  - Pain in extremity [Unknown]
  - Hypertensive heart disease [Unknown]
  - Left atrial enlargement [Unknown]
  - Hiatus hernia [Unknown]
  - Leukocytosis [Unknown]
  - Nasopharyngitis [Unknown]
  - Gastrooesophageal reflux disease [Unknown]
  - Skin lesion [Unknown]
  - Ill-defined disorder [Unknown]
  - Bursitis [Unknown]
  - Spinal disorder [Unknown]
  - Fall [Unknown]
  - Sleep apnoea syndrome [Unknown]
  - Mental disorder [Unknown]
  - Faeces soft [Unknown]
  - Contusion [Unknown]
  - Diarrhoea [Recovered/Resolved]

NARRATIVE: CASE EVENT DATE: 20170101
